FAERS Safety Report 19907858 (Version 2)
Quarter: 2022Q1

REPORT INFORMATION
  Report Type: Report from Study
  Country: US (occurrence: US)
  Receive Date: 20211001
  Receipt Date: 20220307
  Transmission Date: 20220423
  Serious: Yes (Other)
  Sender: FDA-Public Use
  Company Number: US-SHIRE-US202032081

PATIENT
  Sex: Female

DRUGS (2)
  1. HUMAN IMMUNOGLOBULIN G\HYALURONIDASE RECOMBINANT HUMAN [Suspect]
     Active Substance: HUMAN IMMUNOGLOBULIN G\HYALURONIDASE RECOMBINANT HUMAN
     Indication: Immunodeficiency common variable
     Dosage: UNK, Q2WEEKS
     Route: 065
  2. CUVITRU [Suspect]
     Active Substance: HUMAN IMMUNOGLOBULIN G
     Indication: Immunodeficiency common variable
     Route: 065

REACTIONS (9)
  - Systemic mastocytosis [Unknown]
  - Osteopenia [Unknown]
  - Cyst [Unknown]
  - Gastrointestinal disorder [Unknown]
  - Neoplasm [Unknown]
  - Product administration error [Unknown]
  - Rash [Unknown]
  - Infection [Unknown]
  - Asthma [Unknown]
